FAERS Safety Report 7731039-6 (Version None)
Quarter: 2011Q3

REPORT INFORMATION
  Report Type: 
  Country: None (occurrence: None)
  Receive Date: 20110906
  Receipt Date: 20110906
  Transmission Date: 20111222
  Serious: No
  Sender: FDA-Public Use
  Company Number: None

PATIENT
  Sex: Female
  Weight: 79.378 kg

DRUGS (1)
  1. LEVOFLOXACIN (LEVAQUIN) [Suspect]
     Indication: SINUSITIS
     Dosage: 1
     Route: 048
     Dates: start: 20110629, end: 20110706

REACTIONS (7)
  - MUSCULOSKELETAL DISORDER [None]
  - DEPRESSION [None]
  - TENDON PAIN [None]
  - TENDON DISORDER [None]
  - PAIN IN EXTREMITY [None]
  - PARAESTHESIA [None]
  - OEDEMA PERIPHERAL [None]
